FAERS Safety Report 4639641-5 (Version None)
Quarter: 2005Q2

REPORT INFORMATION
  Report Type: 
  Country: None (occurrence: None)
  Receive Date: 20050415
  Receipt Date: 20050404
  Transmission Date: 20051028
  Serious: Yes (Death)
  Sender: FDA-Public Use
  Company Number: GXKR2005GB00817

PATIENT
  Age: 82 Year
  Sex: 0

DRUGS (6)
  1. AMOXICILLIN TRIHYDRATE [Suspect]
  2. CLARITHROMYCIN [Suspect]
  3. DIGOXIN [Concomitant]
  4. ATENOLOL [Concomitant]
  5. WARFARIN (NGX) (WAFARIN) UNKNOWN [Suspect]
     Dosage: 2.8 MG, QD,ORAL
     Route: 048
  6. SERTRALINE (SERTRALINE) [Suspect]
     Indication: DEPRESSION
     Dosage: 50 MG, QD, ORAL
     Route: 048

REACTIONS (3)
  - DRUG INTERACTION [None]
  - INTERNATIONAL NORMALISED RATIO INCREASED [None]
  - SUDDEN DEATH [None]
